FAERS Safety Report 9557657 (Version 3)
Quarter: 2014Q2

REPORT INFORMATION
  Report Type: Spontaneous
  Country: US (occurrence: US)
  Receive Date: 20130926
  Receipt Date: 20140409
  Transmission Date: 20141212
  Serious: Yes (Other)
  Sender: FDA-Public Use
  Company Number: US-B.I. PHARMACEUTICALS,INC./RIDGEFIELD-2013-BI-29626BP

PATIENT
  Age: 75 Year
  Sex: Female
  Weight: 99.79 kg

DRUGS (8)
  1. PRADAXA [Suspect]
     Indication: ANTICOAGULANT THERAPY
     Route: 065
     Dates: start: 20120423, end: 20120510
  2. ADVAIR [Concomitant]
     Route: 065
     Dates: start: 2009
  3. ALBUTEROL INHALER [Concomitant]
     Route: 065
     Dates: start: 2010
  4. ASTHMANEX [Concomitant]
     Route: 065
     Dates: start: 2008
  5. INSULIN [Concomitant]
     Route: 065
     Dates: start: 2000
  6. SPIRIVA [Concomitant]
     Route: 065
     Dates: start: 2008
  7. SYMBICORT [Concomitant]
     Route: 065
     Dates: start: 2008
  8. VENTOLIN [Concomitant]
     Route: 065
     Dates: start: 2009

REACTIONS (1)
  - Haematuria [Recovered/Resolved]
